FAERS Safety Report 4886428-4 (Version None)
Quarter: 2006Q1

REPORT INFORMATION
  Report Type: 
  Country: None (occurrence: None)
  Receive Date: 20060118
  Receipt Date: 20051128
  Transmission Date: 20060701
  Serious: Yes (Other)
  Sender: FDA-Public Use
  Company Number: USA0509107330

PATIENT
  Age: 69 Year
  Sex: Female
  Weight: 60.8 kg

DRUGS (9)
  1. FORTEO [Suspect]
     Indication: OSTEOPOROSIS
     Dosage: 20 UG, DAILY (1/D), SUBCUTANEOUS
     Route: 058
     Dates: start: 20050708, end: 20050905
  2. GLUCOSAMINE (GLUCOSAMINE) [Concomitant]
  3. CALCIUM (CALCIUM) [Concomitant]
  4. MULTI-VITAMIN [Concomitant]
  5. SYNTHROID [Concomitant]
  6. FORTEO PEN , 250 MCG/ML (3ML) (FORTEO PEN 250MCG/ML (3ML)) PEN, DISPOS [Concomitant]
  7. TOBRADEX [Concomitant]
  8. VICODIN [Concomitant]
  9. LEVOTHYROXINE SODIUM [Concomitant]

REACTIONS (9)
  - CARDIAC FLUTTER [None]
  - EYE LASER SURGERY [None]
  - HEART RATE INCREASED [None]
  - MOVEMENT DISORDER [None]
  - MUSCLE SPASMS [None]
  - MUSCLE TWITCHING [None]
  - PALPITATIONS [None]
  - PHARMACEUTICAL PRODUCT COMPLAINT [None]
  - TREMOR [None]
